FAERS Safety Report 4359697-7 (Version None)
Quarter: 2004Q2

REPORT INFORMATION
  Report Type: 
  Country: None (occurrence: None)
  Receive Date: 20040512
  Receipt Date: 20040505
  Transmission Date: 20050107
  Serious: Yes (Hospitalization)
  Sender: FDA-Public Use
  Company Number: US-JNJFOC-20040501217

PATIENT
  Age: 80 Year
  Sex: Female

DRUGS (3)
  1. DURAGESIC [Suspect]
     Dosage: 25 UG/HR, 1 IN 72 HOUR, TRANSDERMAL (SEE IMAGE)
     Route: 062
     Dates: start: 20030501, end: 20030901
  2. DURAGESIC [Suspect]
     Dosage: 25 UG/HR, 1 IN 72 HOUR, TRANSDERMAL (SEE IMAGE)
     Route: 062
     Dates: start: 20040901, end: 20040201
  3. DURAGESIC [Suspect]
     Dosage: 25 UG/HR, 1 IN 72 HOUR, TRANSDERMAL (SEE IMAGE)
     Route: 062
     Dates: start: 20040201

REACTIONS (5)
  - DEPRESSION [None]
  - GAIT DISTURBANCE [None]
  - HYPERSOMNIA [None]
  - INTESTINAL OBSTRUCTION [None]
  - OVERDOSE [None]
